FAERS Safety Report 4726579-8 (Version None)
Quarter: 2005Q3

REPORT INFORMATION
  Report Type: 
  Country: None (occurrence: None)
  Receive Date: 20050727
  Receipt Date: 20050412
  Transmission Date: 20060218
  Serious: Yes (Hospitalization, Disabling)
  Sender: FDA-Public Use
  Company Number: US-MERCK-0504USA02076

PATIENT
  Age: 56 Year
  Sex: Female
  Weight: 135 kg

DRUGS (9)
  1. VIOXX [Suspect]
     Indication: PAIN
     Route: 048
     Dates: start: 19990101, end: 20040930
  2. VIOXX [Suspect]
     Route: 048
     Dates: start: 19990101, end: 20040930
  3. VIOXX [Suspect]
     Indication: ARTHRALGIA
     Route: 048
     Dates: start: 19990101, end: 20040930
  4. VIOXX [Suspect]
     Route: 048
     Dates: start: 19990101, end: 20040930
  5. PROZAC [Concomitant]
     Indication: ANXIETY
     Route: 065
  6. PROZAC [Concomitant]
     Indication: PANIC DISORDER
     Route: 065
  7. PAXIL [Concomitant]
     Indication: ANXIETY
     Route: 065
  8. PAXIL [Concomitant]
     Indication: PANIC DISORDER
     Route: 065
  9. SYNTHROID [Concomitant]
     Indication: HYPOTHYROIDISM
     Route: 065

REACTIONS (9)
  - ABDOMINAL PAIN UPPER [None]
  - ANXIETY [None]
  - CEREBROVASCULAR ACCIDENT [None]
  - DYSPEPSIA [None]
  - HYPERTENSION [None]
  - OEDEMA PERIPHERAL [None]
  - PANIC DISORDER [None]
  - UPPER RESPIRATORY TRACT INFECTION [None]
  - VOMITING [None]
